FAERS Safety Report 6011372-9 (Version None)
Quarter: 2008Q4

REPORT INFORMATION
  Report Type: 
  Country: None (occurrence: None)
  Receive Date: 20081218
  Receipt Date: 20081212
  Transmission Date: 20090506
  Serious: Yes (Other)
  Sender: FDA-Public Use
  Company Number: DE-GENENTECH-270839

PATIENT
  Sex: Male

DRUGS (4)
  1. LUCENTIS [Suspect]
     Indication: MACULAR DEGENERATION
     Dosage: UNK
     Route: 031
     Dates: start: 20080201
  2. ANTIBIOTICS (NOT SPECIFIED) [Suspect]
     Indication: PREMEDICATION
     Dosage: UNK
     Route: 061
     Dates: start: 20080201
  3. IODINE [Suspect]
     Indication: PREMEDICATION
     Dosage: UNK
     Route: 061
     Dates: start: 20080201
  4. ANTIHYPERTENSIVE DRUG [Concomitant]
     Indication: DRUG USE FOR UNKNOWN INDICATION

REACTIONS (3)
  - EPISTAXIS [None]
  - HYPERSENSITIVITY [None]
  - PARAESTHESIA [None]
